FAERS Safety Report 9618896 (Version 2)
Quarter: 2014Q1

REPORT INFORMATION
  Report Type: Report from Study
  Country: US (occurrence: US)
  Receive Date: 20131014
  Receipt Date: 20140116
  Transmission Date: 20141002
  Serious: Yes (Hospitalization)
  Sender: FDA-Public Use
  Company Number: US-BAYER-2013-120556

PATIENT
  Age: 67 Year
  Sex: Female

DRUGS (2)
  1. STIVARGA [Suspect]
     Indication: COLON CANCER
     Dosage: 160 MG, QD
     Route: 048
     Dates: start: 20130910, end: 20130924
  2. STIVARGA [Suspect]
     Indication: METASTASES TO LIVER
     Dosage: DAILY DOSE 80 MG
     Route: 048
     Dates: start: 20130911, end: 20140113

REACTIONS (6)
  - Fatigue [None]
  - Stomatitis [None]
  - Pain in extremity [None]
  - Gait disturbance [None]
  - Decreased appetite [None]
  - Aphagia [None]
